FAERS Safety Report 8830690 (Version 1)
Quarter: 2012Q4

REPORT INFORMATION
  Report Type: 
  Country: US (occurrence: US)
  Receive Date: 20121008
  Receipt Date: 20121008
  Transmission Date: 20130627
  Serious: No
  Sender: FDA-Public Use
  Company Number: US-PFIZER INC-2012246667

PATIENT
  Age: 30 Year
  Sex: Male
  Weight: 99.77 kg

DRUGS (2)
  1. NEURONTIN [Suspect]
     Indication: SCIATICA
     Dosage: 800 mg, 3x/day
     Route: 048
  2. LORCET [Concomitant]
     Dosage: UNK

REACTIONS (2)
  - Cough [Not Recovered/Not Resolved]
  - Nasopharyngitis [Not Recovered/Not Resolved]
